FAERS Safety Report 22114355 (Version 1)
Quarter: 2023Q1

REPORT INFORMATION
  Report Type: Other
  Country: None (occurrence: US)
  Receive Date: 20230320
  Receipt Date: 20230320
  Transmission Date: 20230418
  Serious: Yes (Other)
  Sender: FDA-Public Use
  Company Number: US-Ajanta Pharma USA Inc.-2139262

PATIENT
  Age: 58 Year
  Sex: Female

DRUGS (5)
  1. LAMOTRIGINE [Suspect]
     Active Substance: LAMOTRIGINE
     Indication: Mood swings
  2. DULOXETINE [Suspect]
     Active Substance: DULOXETINE
  3. BUPROPION [Suspect]
     Active Substance: BUPROPION
  4. GABAPENTIN [Suspect]
     Active Substance: GABAPENTIN
  5. TRAZODONE [Suspect]
     Active Substance: TRAZODONE HYDROCHLORIDE

REACTIONS (1)
  - Chorea [Not Recovered/Not Resolved]
